FAERS Safety Report 9143896 (Version 1)
Quarter: 2013Q1

REPORT INFORMATION
  Report Type: Spontaneous
  Country: US (occurrence: US)
  Receive Date: 20130306
  Receipt Date: 20130306
  Transmission Date: 20140127
  Serious: Yes (Hospitalization)
  Sender: FDA-Public Use
  Company Number: PHHY2013US020213

PATIENT
  Age: 79 Year
  Sex: Female

DRUGS (5)
  1. MIRTAZAPINE [Suspect]
     Dosage: 30 MG/DAY
  2. MIRTAZAPINE [Suspect]
     Dosage: 45 MG/DAY
  3. DONEPEZIL [Suspect]
     Dosage: 5 MG
  4. DONEPEZIL [Suspect]
     Dosage: 10 MG
  5. ESZOPICLONE [Concomitant]
     Dosage: 2 MG

REACTIONS (9)
  - Encephalopathy [Recovered/Resolved]
  - Depression [Recovered/Resolved]
  - Anxiety [Recovered/Resolved]
  - Acute psychosis [Recovered/Resolved]
  - Confusional state [Recovered/Resolved]
  - Speech disorder [Recovered/Resolved]
  - Delusion [Recovered/Resolved]
  - Electroencephalogram abnormal [Recovered/Resolved]
  - Agitation [Recovered/Resolved]
